FAERS Safety Report 20910375 (Version 2)
Quarter: 2022Q3

REPORT INFORMATION
  Report Type: Spontaneous
  Country: DE (occurrence: DE)
  Receive Date: 20220603
  Receipt Date: 20220706
  Transmission Date: 20221027
  Serious: Yes (Other)
  Sender: FDA-Public Use
  Company Number: DE-Desitin-2022-01500

PATIENT
  Age: 49 Year
  Sex: Female
  Weight: 53 kg

DRUGS (17)
  1. LAMOTRIGINE [Interacting]
     Active Substance: LAMOTRIGINE
     Indication: Epilepsy
     Dosage: IN THE MORNING 200MG AND IN THE EVENING 100MG
     Route: 065
  2. LAMOTRIGINE [Interacting]
     Active Substance: LAMOTRIGINE
     Dosage: 300 MILLIGRAM, QD (IN THE MORNING 125MG AND IN THE EVENING 125MG )
     Route: 065
  3. LAMOTRIGINE [Interacting]
     Active Substance: LAMOTRIGINE
     Dosage: UNK, AM (INTAKE IN THE MORNING)
     Route: 065
     Dates: start: 201503
  4. LAMOTRIGINE [Interacting]
     Active Substance: LAMOTRIGINE
     Dosage: 100 MILLIGRAM, AM (IN THE MORNING 100MG  )
     Route: 065
     Dates: start: 201602
  5. LAMOTRIGINE [Interacting]
     Active Substance: LAMOTRIGINE
     Dosage: 100 MILLIGRAM, AM (IN THE MORNING 100MG  )
     Route: 065
     Dates: start: 201805
  6. LAMOTRIGINE [Interacting]
     Active Substance: LAMOTRIGINE
     Dosage: 225 MILLIGRAM, AM (INTAKE IN THE MORNING  )
     Route: 065
     Dates: start: 2020
  7. LAMOTRIGINE [Interacting]
     Active Substance: LAMOTRIGINE
     Dosage: 275 MILLIGRAM, QD (IN THE MORNING 150MG AND IN THE EVENING 125MG )
     Route: 065
     Dates: start: 202108
  8. LAMOTRIGINE [Interacting]
     Active Substance: LAMOTRIGINE
     Dosage: 275 MILLIGRAM, QD (IN THE MORNING 150MG AND IN THE EVENING 125MG )
     Route: 065
     Dates: start: 202203
  9. LAMOTRIGINE [Interacting]
     Active Substance: LAMOTRIGINE
     Dosage: 300 MILLIGRAM, QD (IN THE MORNING 200MG AND IN THE EVENING 100MG  )
     Route: 065
     Dates: start: 20220504
  10. ESTRADIOL [Interacting]
     Active Substance: ESTRADIOL
     Indication: Product used for unknown indication
     Dosage: UNK, AM (2 PUFFS IN THE MORNING  )
     Route: 065
     Dates: start: 2011
  11. LEVETIRACETAM [Concomitant]
     Active Substance: LEVETIRACETAM
     Indication: Epilepsy
     Dosage: 1000 MILLIGRAM, BID
     Route: 065
  12. LEVETIRACETAM [Concomitant]
     Active Substance: LEVETIRACETAM
     Dosage: 750 MILLIGRAM, BID (750-0-750)
     Route: 065
     Dates: start: 2020
  13. LEVETIRACETAM [Concomitant]
     Active Substance: LEVETIRACETAM
     Dosage: 750 MILLIGRAM, BID (750-0-750  )
     Route: 065
     Dates: start: 202107
  14. LEVETIRACETAM [Concomitant]
     Active Substance: LEVETIRACETAM
     Dosage: 750 MILLIGRAM, BID (750-0-750  )
     Route: 065
     Dates: start: 202108
  15. LEVETIRACETAM [Concomitant]
     Active Substance: LEVETIRACETAM
     Dosage: 1000 MILLIGRAM, QD (1000-0-1000  )
     Route: 065
     Dates: start: 202203
  16. LEVETIRACETAM [Concomitant]
     Active Substance: LEVETIRACETAM
     Dosage: 1000 MILLIGRAM, QD (1000-0-1000 )
     Route: 065
     Dates: start: 20220504
  17. PROGESTERONE [Concomitant]
     Active Substance: PROGESTERONE
     Dosage: IN THE EVENING
     Route: 065
     Dates: start: 2011

REACTIONS (4)
  - Seizure [Recovering/Resolving]
  - Therapeutic product effect incomplete [Recovering/Resolving]
  - Drug interaction [Unknown]
  - Anticonvulsant drug level decreased [Not Recovered/Not Resolved]
